FAERS Safety Report 7842656-7 (Version None)
Quarter: 2011Q4

REPORT INFORMATION
  Report Type: 
  Country: None (occurrence: None)
  Receive Date: 20111024
  Receipt Date: 20111024
  Transmission Date: 20120403
  Serious: Yes (Life-Threatening, Hospitalization)
  Sender: FDA-Public Use
  Company Number: None

PATIENT
  Age: 85 Year
  Sex: Male

DRUGS (1)
  1. MACROBID [Suspect]
     Indication: INFECTION PROPHYLAXIS
     Dosage: ORAL
     Route: 048
     Dates: start: 20110601, end: 20110624

REACTIONS (16)
  - COUGH [None]
  - FATIGUE [None]
  - DYSPNOEA [None]
  - ASTHENIA [None]
  - CONTRAINDICATION TO MEDICAL TREATMENT [None]
  - JOINT SWELLING [None]
  - CYANOSIS [None]
  - CHILLS [None]
  - MUSCULAR WEAKNESS [None]
  - CHEST DISCOMFORT [None]
  - PAIN IN EXTREMITY [None]
  - ARTHRALGIA [None]
  - OEDEMA PERIPHERAL [None]
  - PYREXIA [None]
  - BUTTERFLY RASH [None]
  - FEELING ABNORMAL [None]
